FAERS Safety Report 12496163 (Version 7)
Quarter: 2017Q3

REPORT INFORMATION
  Report Type: Spontaneous
  Country: US (occurrence: US)
  Receive Date: 20160624
  Receipt Date: 20170712
  Transmission Date: 20171127
  Serious: Yes (Death, Hospitalization, Other)
  Sender: FDA-Public Use
  Company Number: US-PFIZER INC-2016310598

PATIENT
  Age: 80 Year
  Sex: Female
  Weight: 45 kg

DRUGS (4)
  1. BOSULIF [Suspect]
     Active Substance: BOSUTINIB MONOHYDRATE
     Dosage: 500 MG, EVERY OTHER DAY
     Route: 048
     Dates: start: 20160516
  2. BOSULIF [Suspect]
     Active Substance: BOSUTINIB MONOHYDRATE
     Dosage: 500 MG, EVERY OTHER DAY
     Route: 048
     Dates: start: 20160516
  3. BOSULIF [Suspect]
     Active Substance: BOSUTINIB MONOHYDRATE
     Indication: CHRONIC MYELOID LEUKAEMIA
     Dosage: 500 MG, ONCE DAILY
     Route: 048
     Dates: start: 20160516
  4. BOSULIF [Suspect]
     Active Substance: BOSUTINIB MONOHYDRATE
     Dosage: 500 MG, EVERY OTHER DAY
     Route: 048

REACTIONS (14)
  - Influenza [Recovered/Resolved]
  - Urinary tract infection [Recovered/Resolved]
  - Haemoglobin decreased [Unknown]
  - Limb discomfort [Unknown]
  - Decreased appetite [Unknown]
  - Body temperature increased [Unknown]
  - Hypersomnia [Unknown]
  - Productive cough [Not Recovered/Not Resolved]
  - Somnolence [Unknown]
  - Dyskinesia [Unknown]
  - Death [Fatal]
  - Pneumonia [Unknown]
  - Dry mouth [Unknown]
  - Fatigue [Not Recovered/Not Resolved]
